FAERS Safety Report 9170458 (Version 1)
Quarter: 2013Q1

REPORT INFORMATION
  Report Type: Spontaneous
  Country: US (occurrence: US)
  Receive Date: 20130319
  Receipt Date: 20130319
  Transmission Date: 20140127
  Serious: No
  Sender: FDA-Public Use
  Company Number: US-BAYER-2013-033878

PATIENT
  Age: 53 Year
  Sex: Female

DRUGS (1)
  1. MAGNEVIST [Suspect]
     Indication: BREAST SCAN
     Dosage: 20 ML, UNK
     Dates: start: 20130313, end: 20130313

REACTIONS (2)
  - Rash [None]
  - Pharyngeal disorder [None]
